FAERS Safety Report 24677230 (Version 1)
Quarter: 2024Q4

REPORT INFORMATION
  Report Type: Spontaneous
  Country: JP (occurrence: JP)
  Receive Date: 20241129
  Receipt Date: 20241129
  Transmission Date: 20250115
  Serious: Yes (Hospitalization, Other)
  Sender: ADVANZ PHARMA
  Company Number: JP-SA-2024SA108999

PATIENT

DRUGS (5)
  1. HYDROXYCHLOROQUINE SULFATE [Suspect]
     Active Substance: HYDROXYCHLOROQUINE SULFATE
     Indication: Systemic lupus erythematosus
     Dosage: 1 DOSAGE FORM, QOD ((FILM-COATED TABLET))
     Route: 048
     Dates: start: 20190709, end: 20240407
  2. HYDROXYCHLOROQUINE SULFATE [Suspect]
     Active Substance: HYDROXYCHLOROQUINE SULFATE
     Dosage: 2 DOSAGE FORM, QOD (2 DF, QOD (FILM-COATED TABLET))
     Route: 048
     Dates: start: 20190709, end: 20240407
  3. ELDECALCITOL [Concomitant]
     Active Substance: ELDECALCITOL
     Indication: Product used for unknown indication
     Dosage: 1 DOSAGE FORM, QD (1 C (0.75 UG), QD)
     Route: 048
  4. BERAPROST SODIUM [Concomitant]
     Active Substance: BERAPROST SODIUM
     Indication: Product used for unknown indication
     Dosage: 1 DOSAGE FORM, BID (1 DF (20 UG), BID)
     Route: 048
     Dates: start: 202010
  5. MIROGABALIN BESYLATE [Concomitant]
     Active Substance: MIROGABALIN BESYLATE
     Indication: Product used for unknown indication
     Dosage: 1 DOSAGE FORM, QD (1 DF (2.5 MG), QD)
     Route: 048
     Dates: start: 20190709

REACTIONS (3)
  - Dyspnoea [Recovered/Resolved]
  - Atrioventricular block complete [Recovered/Resolved]
  - Chest pain [Recovered/Resolved]

NARRATIVE: CASE EVENT DATE: 20240407
